FAERS Safety Report 6255731-8 (Version None)
Quarter: 2009Q3

REPORT INFORMATION
  Report Type: 
  Country: None (occurrence: None)
  Receive Date: 20090701
  Receipt Date: 20090619
  Transmission Date: 20100115
  Serious: Yes (Life-Threatening, Hospitalization)
  Sender: FDA-Public Use
  Company Number: 1000006770

PATIENT
  Age: 1 Day
  Sex: Male
  Weight: 1.4 kg

DRUGS (13)
  1. MILNACIPRAN (MILNACIPRAN HYDROCHLORIDE)(TABLETS) [Suspect]
     Dosage: 50 MG (50 MG,1 IN 1  TRANSPLACENTAL
     Route: 064
     Dates: start: 20090405, end: 20090519
  2. MEILAX [Suspect]
     Indication: DEPRESSIVE SYMPTOM
     Route: 064
     Dates: end: 20090519
  3. MEILAX [Suspect]
     Indication: INSOMNIA
     Route: 064
     Dates: end: 20090519
  4. MEILAX [Suspect]
     Indication: PANIC DISORDER
     Route: 064
     Dates: end: 20090519
  5. HALCION [Suspect]
     Indication: DEPRESSIVE SYMPTOM
     Dosage: TRANSPLACENTAL
     Route: 064
     Dates: end: 20090519
  6. HALCION [Suspect]
     Indication: INSOMNIA
     Dosage: TRANSPLACENTAL
     Route: 064
     Dates: end: 20090519
  7. HALCION [Suspect]
     Indication: PANIC DISORDER
     Dosage: TRANSPLACENTAL
     Route: 064
     Dates: end: 20090519
  8. CERCINE [Suspect]
     Indication: DEPRESSIVE SYMPTOM
     Dosage: TRANSPLACENTAL
     Route: 064
     Dates: end: 20090519
  9. CERCINE [Suspect]
     Indication: INSOMNIA
     Dosage: TRANSPLACENTAL
     Route: 064
     Dates: end: 20090519
  10. CERCINE [Suspect]
     Indication: PANIC DISORDER
     Dosage: TRANSPLACENTAL
     Route: 064
     Dates: end: 20090519
  11. DEZOLAM [Suspect]
     Indication: DEPRESSIVE SYMPTOM
     Dosage: TRANSPLACENTAL
     Route: 064
     Dates: end: 20090519
  12. DEZOLAM [Suspect]
     Indication: INSOMNIA
     Dosage: TRANSPLACENTAL
     Route: 064
     Dates: end: 20090519
  13. DEZOLAM [Suspect]
     Indication: PANIC DISORDER
     Dosage: TRANSPLACENTAL
     Route: 064
     Dates: end: 20090519

REACTIONS (11)
  - ALANINE AMINOTRANSFERASE INCREASED [None]
  - AMNIOTIC FLUID VOLUME DECREASED [None]
  - ASPARTATE AMINOTRANSFERASE INCREASED [None]
  - BLOOD ALKALINE PHOSPHATASE INCREASED [None]
  - BLOOD LACTATE DEHYDROGENASE INCREASED [None]
  - CAESAREAN SECTION [None]
  - FOETAL CARDIAC DISORDER [None]
  - HAEMORRHAGE SUBCUTANEOUS [None]
  - MATERNAL DRUGS AFFECTING FOETUS [None]
  - PANCYTOPENIA [None]
  - PREMATURE BABY [None]
